FAERS Safety Report 25574811 (Version 1)
Quarter: 2025Q3

REPORT INFORMATION
  Report Type: Spontaneous
  Country: GB (occurrence: GB)
  Receive Date: 20250718
  Receipt Date: 20250718
  Transmission Date: 20251020
  Serious: Yes (Other)
  Sender: ACCORD
  Company Number: None

PATIENT
  Age: 61 Year
  Sex: Female
  Weight: 76 kg

DRUGS (4)
  1. AMLODIPINE [Suspect]
     Active Substance: AMLODIPINE BESYLATE
     Indication: Product used for unknown indication
     Dosage: STRENGTH: 5MG
     Dates: start: 20250311
  2. PROCHLORPERAZINE [Concomitant]
     Active Substance: PROCHLORPERAZINE
     Dates: start: 20250625, end: 20250702
  3. INDAPAMIDE [Concomitant]
     Active Substance: INDAPAMIDE
     Dosage: EACH MORNING
     Dates: start: 20250707
  4. LOSARTAN [Concomitant]
     Active Substance: LOSARTAN
     Dosage: AS ADVISED
     Dates: start: 20250311

REACTIONS (3)
  - Oedema peripheral [Unknown]
  - Palpitations [Recovered/Resolved]
  - Visual impairment [Unknown]
